FAERS Safety Report 25236049 (Version 2)
Quarter: 2025Q3

REPORT INFORMATION
  Report Type: Spontaneous
  Country: JP (occurrence: JP)
  Receive Date: 20250424
  Receipt Date: 20250807
  Transmission Date: 20251020
  Serious: Yes (Other)
  Sender: GUERBET
  Company Number: JP-GUERBETG_JAPAN-JP-20250073

PATIENT
  Age: 76 Year
  Sex: Female

DRUGS (4)
  1. LIPIODOL [Suspect]
     Active Substance: ETHIODIZED OIL
     Indication: Sclerotherapy
     Dosage: TOTAL VOLUME OF 2.6 ML OF 77% NBCA SOLUTION OF 1 ML OF HISTOACRYL MIXED WITH 0.3 ML OF LIPIODOL IN A
  2. LIPIODOL [Suspect]
     Active Substance: ETHIODIZED OIL
     Dosage: TOTAL VOLUME OF 2.6 ML OF 77% NBCA SOLUTION OF 1 ML OF HISTOACRYL MIXED WITH 0.3 ML OF LIPIODOL IN A
  3. HISTOACRYL [Suspect]
     Active Substance: ENBUCRILATE
     Indication: Sclerotherapy
  4. HISTOACRYL [Suspect]
     Active Substance: ENBUCRILATE

REACTIONS (4)
  - Cerebral infarction [Recovering/Resolving]
  - Cerebral artery embolism [Recovering/Resolving]
  - Cerebral artery occlusion [Recovering/Resolving]
  - Device dislocation [Recovered/Resolved]
